FAERS Safety Report 12136891 (Version 1)
Quarter: 2016Q1

REPORT INFORMATION
  Report Type: Report from Study
  Country: KR (occurrence: KR)
  Receive Date: 20160302
  Receipt Date: 20160302
  Transmission Date: 20160526
  Serious: Yes (Death, Other)
  Sender: FDA-Public Use
  Company Number: KR-VIIV HEALTHCARE LIMITED-KR2016GSK030218

PATIENT
  Sex: Female

DRUGS (3)
  1. ADEFOVIR [Interacting]
     Active Substance: ADEFOVIR
     Indication: ANTIVIRAL PROPHYLAXIS
     Dosage: UNK
  2. LAMIVUDINE. [Suspect]
     Active Substance: LAMIVUDINE
     Indication: ANTIVIRAL PROPHYLAXIS
     Dosage: UNK
  3. TACROLIMUS. [Interacting]
     Active Substance: TACROLIMUS
     Indication: IMMUNOSUPPRESSION
     Dosage: UNK

REACTIONS (3)
  - Drug interaction [Unknown]
  - Renal tubular disorder [Unknown]
  - Death [Fatal]
